FAERS Safety Report 5055116-6 (Version None)
Quarter: 2006Q3

REPORT INFORMATION
  Report Type: 
  Country: None (occurrence: None)
  Receive Date: 20060714
  Receipt Date: 20060710
  Transmission Date: 20061208
  Serious: Yes (Death, Life-Threatening, Hospitalization)
  Sender: FDA-Public Use
  Company Number: HQWYE799212APR06

PATIENT
  Age: 56 Year
  Sex: Male

DRUGS (11)
  1. ANCARON (AMIODARONE, TABLET) [Suspect]
     Indication: CARDIAC FAILURE
     Dosage: SEE IMAGE
     Route: 048
     Dates: start: 20030918, end: 20030918
  2. ANCARON (AMIODARONE, TABLET) [Suspect]
     Indication: RENAL FAILURE
     Dosage: SEE IMAGE
     Route: 048
     Dates: start: 20030918, end: 20030918
  3. ANCARON (AMIODARONE, TABLET) [Suspect]
     Indication: VENTRICULAR ARRHYTHMIA
     Dosage: SEE IMAGE
     Route: 048
     Dates: start: 20030918, end: 20030918
  4. ANCARON (AMIODARONE, TABLET) [Suspect]
     Indication: CARDIAC FAILURE
     Dosage: SEE IMAGE
     Route: 048
     Dates: end: 20060330
  5. ANCARON (AMIODARONE, TABLET) [Suspect]
     Indication: RENAL FAILURE
     Dosage: SEE IMAGE
     Route: 048
     Dates: end: 20060330
  6. ANCARON (AMIODARONE, TABLET) [Suspect]
     Indication: VENTRICULAR ARRHYTHMIA
     Dosage: SEE IMAGE
     Route: 048
     Dates: end: 20060330
  7. BLOPRESS (CANDESARTAN CILEXETIL) [Concomitant]
  8. LASIX [Concomitant]
  9. CARVEDILOL [Concomitant]
  10. MUCOSTA (REBAMIPIDE) [Concomitant]
  11. AMOBAN (ZOPICLONE) [Concomitant]

REACTIONS (6)
  - CARDIAC FAILURE [None]
  - CEREBRAL ARTERY EMBOLISM [None]
  - CEREBRAL INFARCTION [None]
  - CONDITION AGGRAVATED [None]
  - INTERSTITIAL LUNG DISEASE [None]
  - PARALYSIS [None]
